FAERS Safety Report 6577563-3 (Version None)
Quarter: 2010Q1

REPORT INFORMATION
  Report Type: 
  Country: None (occurrence: None)
  Receive Date: 20100211
  Receipt Date: 20100202
  Transmission Date: 20100710
  Serious: Yes (Other)
  Sender: FDA-Public Use
  Company Number: US-ASTRAZENECA-2010SE04706

PATIENT
  Age: 43 Year
  Sex: Female
  Weight: 108.9 kg

DRUGS (9)
  1. NEXIUM [Suspect]
     Indication: GASTROOESOPHAGEAL REFLUX DISEASE
     Route: 048
     Dates: start: 20010101, end: 20090101
  2. NEXIUM [Suspect]
     Route: 048
     Dates: start: 20100101
  3. DIOVAN [Concomitant]
     Indication: BLOOD PRESSURE
  4. CALCIUM CITRATE [Concomitant]
  5. SIMVASTATIN [Concomitant]
     Indication: BLOOD CHOLESTEROL
  6. VIT D [Concomitant]
     Indication: VITAMIN D DEFICIENCY
  7. HYDROCODONE [Concomitant]
  8. VALIUM [Concomitant]
  9. IBUPROFEN [Concomitant]

REACTIONS (2)
  - CARPAL TUNNEL SYNDROME [None]
  - VITAMIN D DECREASED [None]
